FAERS Safety Report 15274610 (Version 1)
Quarter: 2018Q3

REPORT INFORMATION
  Report Type: Spontaneous
  Country: US (occurrence: US)
  Receive Date: 20180814
  Receipt Date: 20180814
  Transmission Date: 20181010
  Serious: Yes (Death, Other)
  Sender: FDA-Public Use
  Company Number: US-ROCHE-2167826

PATIENT
  Age: 65 Year
  Sex: Male

DRUGS (2)
  1. ZELBORAF [Suspect]
     Active Substance: VEMURAFENIB
     Indication: RECTAL CANCER
     Dosage: 4 TAB
     Route: 048
     Dates: start: 20180713, end: 20180725
  2. COTELLIC [Suspect]
     Active Substance: COBIMETINIB
     Indication: RECTAL CANCER
     Dosage: 3 TAB DAILY FOR 21 DAYS THEN 7 DAYS OFF
     Route: 048
     Dates: start: 20180713, end: 20180725

REACTIONS (3)
  - Intentional product use issue [Unknown]
  - Off label use [Unknown]
  - Respiratory failure [Fatal]

NARRATIVE: CASE EVENT DATE: 20180725
